FAERS Safety Report 9404322 (Version 1)
Quarter: 2013Q3

REPORT INFORMATION
  Report Type: Spontaneous
  Country: US (occurrence: None)
  Receive Date: 20130711
  Receipt Date: 20130711
  Transmission Date: 20140515
  Serious: Yes (Other)
  Sender: FDA-Public Use
  Company Number: UTC-034585

PATIENT
  Age: 69 Year
  Sex: Female
  Weight: 116.8 kg

DRUGS (1)
  1. TYVASO [Suspect]

REACTIONS (1)
  - Device breakage [None]
